FAERS Safety Report 10045109 (Version 1)
Quarter: 2014Q1

REPORT INFORMATION
  Report Type: Spontaneous
  Country: SK (occurrence: SK)
  Receive Date: 20140328
  Receipt Date: 20140328
  Transmission Date: 20141002
  Serious: Yes (Death, Other)
  Sender: FDA-Public Use
  Company Number: SK-CELGENEUS-260-21880-14032369

PATIENT
  Sex: 0

DRUGS (1)
  1. REVLIMID [Suspect]
     Indication: PLASMA CELL MYELOMA
     Route: 048

REACTIONS (10)
  - Neutropenia [Fatal]
  - Anaemia [Fatal]
  - Neuropathy peripheral [Fatal]
  - Thrombocytopenia [Fatal]
  - Infection [Fatal]
  - Thrombosis [Unknown]
  - Decreased appetite [Unknown]
  - Fatigue [Unknown]
  - Decreased appetite [Unknown]
  - Constipation [Unknown]
